FAERS Safety Report 22743371 (Version 9)
Quarter: 2024Q2

REPORT INFORMATION
  Report Type: Spontaneous
  Country: US (occurrence: US)
  Receive Date: 20230724
  Receipt Date: 20240422
  Transmission Date: 20240716
  Serious: No
  Sender: FDA-Public Use
  Company Number: US-PFIZER INC-202300254497

PATIENT
  Age: 16 Year
  Sex: Male

DRUGS (1)
  1. GENOTROPIN [Suspect]
     Active Substance: SOMATROPIN
     Indication: Growth hormone deficiency
     Dosage: UNK (ROTATES 2.2 MG AND 2.4 MG, 6 DAYS A WEEK)

REACTIONS (4)
  - Wrong technique in device usage process [Unknown]
  - Drug dose omission by device [Unknown]
  - Device breakage [Unknown]
  - Device occlusion [Unknown]

NARRATIVE: CASE EVENT DATE: 20230716
